FAERS Safety Report 8778926 (Version 2)
Quarter: 2012Q4

REPORT INFORMATION
  Report Type: Report from Study
  Country: JP (occurrence: JP)
  Receive Date: 20120912
  Receipt Date: 20120912
  Transmission Date: 20130627
  Serious: Yes (Death, Other)
  Sender: FDA-Public Use
  Company Number: PHHY2011JP15385

PATIENT
  Age: 68 Year
  Sex: Male
  Weight: 66 kg

DRUGS (8)
  1. ICL670A [Suspect]
     Indication: MYELODYSPLASTIC SYNDROME
     Dosage: 1000 mg
     Route: 048
     Dates: start: 20100615, end: 201007
  2. AMLODIN [Concomitant]
     Indication: HYPERTENSION
     Dosage: 5 mg, UNK
     Route: 048
     Dates: start: 20100726
  3. RENIVEZE [Concomitant]
     Indication: HYPERTENSION
     Dosage: 5 mg, UNK
     Route: 048
     Dates: start: 20100726
  4. TAKEPRON [Concomitant]
     Indication: PROPHYLAXIS
     Dosage: 15 mg, UNK
     Route: 048
     Dates: start: 20100801
  5. ITRIZOLE [Concomitant]
     Indication: PROPHYLAXIS
     Dosage: 20 ml, UNK
     Dates: start: 20091110, end: 20100801
  6. MAXIPIME [Concomitant]
     Indication: PROPHYLAXIS
     Dosage: 3 g, UNK
     Dates: start: 20100725, end: 20100728
  7. MEROPEN [Concomitant]
     Indication: PROPHYLAXIS
     Dosage: 1.5 g, UNK
     Dates: start: 20100728
  8. RED BLOOD CELLS, CONCENTRATED [Concomitant]
     Dosage: 2 units twice per week
     Dates: start: 20100616, end: 20100802

REACTIONS (2)
  - Pneumonia [Fatal]
  - Disease progression [Fatal]
